FAERS Safety Report 5654886-3 (Version None)
Quarter: 2008Q1

REPORT INFORMATION
  Report Type: 
  Country: None (occurrence: None)
  Receive Date: 20080307
  Receipt Date: 20070824
  Transmission Date: 20080703
  Serious: No
  Sender: FDA-Public Use
  Company Number: A0676140A

PATIENT
  Sex: Female

DRUGS (7)
  1. REQUIP [Suspect]
     Indication: PARKINSON'S DISEASE
     Dosage: 1MG THREE TIMES PER DAY
     Route: 048
     Dates: start: 20070101
  2. CARBIDOPA AND LEVODOPA [Concomitant]
  3. ZOLOFT [Concomitant]
  4. ATENOLOL [Concomitant]
  5. TRAMADOL HCL [Concomitant]
  6. ALPRAZOLAM [Concomitant]
  7. KETOCONAZOLE [Concomitant]

REACTIONS (1)
  - NAUSEA [None]
